FAERS Safety Report 12468780 (Version 2)
Quarter: 2016Q3

REPORT INFORMATION
  Report Type: Spontaneous
  Country: US (occurrence: US)
  Receive Date: 20160615
  Receipt Date: 20160829
  Transmission Date: 20161109
  Serious: Yes (Hospitalization, Other)
  Sender: FDA-Public Use
  Company Number: US-PFIZER INC-2016299486

PATIENT
  Age: 67 Year
  Sex: Male

DRUGS (2)
  1. DEPO-TESTOSTERONE [Suspect]
     Active Substance: TESTOSTERONE CYPIONATE
     Indication: HORMONE REPLACEMENT THERAPY
     Dosage: UNK
     Dates: start: 2006, end: 2014
  2. ANDROGEL [Suspect]
     Active Substance: TESTOSTERONE
     Indication: HORMONE REPLACEMENT THERAPY
     Dosage: UNK, EVERY 3 WEEKS (EVERY 21 DAYS)
     Dates: start: 2006, end: 2008

REACTIONS (4)
  - Myocardial infarction [Unknown]
  - Subdural haematoma [Unknown]
  - Memory impairment [Unknown]
  - Coronary artery thrombosis [Unknown]

NARRATIVE: CASE EVENT DATE: 201404
